FAERS Safety Report 12973395 (Version 2)
Quarter: 2016Q4

REPORT INFORMATION
  Report Type: Report from Study
  Country: US (occurrence: US)
  Receive Date: 20161124
  Receipt Date: 20161129
  Transmission Date: 20170207
  Serious: Yes (Hospitalization)
  Sender: FDA-Public Use
  Company Number: US-BIOGEN-2016BI00320740

PATIENT
  Age: 57 Year
  Sex: Male

DRUGS (1)
  1. TECFIDERA [Suspect]
     Active Substance: DIMETHYL FUMARATE
     Indication: MULTIPLE SCLEROSIS
     Route: 048
     Dates: start: 20140619, end: 20150814

REACTIONS (5)
  - Cervical vertebral fracture [Unknown]
  - Pain [Unknown]
  - White blood cell count abnormal [Unknown]
  - Overdose [Unknown]
  - Mental impairment [Unknown]

NARRATIVE: CASE EVENT DATE: 201508
